FAERS Safety Report 6122046-8 (Version None)
Quarter: 2009Q1

REPORT INFORMATION
  Report Type: 
  Country: None (occurrence: None)
  Receive Date: 20090316
  Receipt Date: 20090303
  Transmission Date: 20090719
  Serious: Yes (Life-Threatening, Hospitalization)
  Sender: FDA-Public Use
  Company Number: 2009AP000488

PATIENT
  Age: 54 Year
  Sex: Male

DRUGS (1)
  1. CARBAMAZEPINE [Suspect]

REACTIONS (2)
  - HLA MARKER STUDY POSITIVE [None]
  - STEVENS-JOHNSON SYNDROME [None]
